FAERS Safety Report 17147675 (Version 1)
Quarter: 2019Q4

REPORT INFORMATION
  Report Type: Spontaneous
  Country: AU (occurrence: AU)
  Receive Date: 20191212
  Receipt Date: 20191212
  Transmission Date: 20200122
  Serious: Yes (Other)
  Sender: FDA-Public Use
  Company Number: AU-BAYER-2019-219791

PATIENT
  Age: 35 Year
  Sex: Female

DRUGS (2)
  1. MIRENA [Suspect]
     Active Substance: LEVONORGESTREL
     Dosage: 20 MCG/24HR, CONT
     Route: 015
     Dates: start: 201807, end: 20191105
  2. PROZAC [Concomitant]
     Active Substance: FLUOXETINE HYDROCHLORIDE
     Indication: DEPRESSION
     Dosage: UNK
     Route: 048
     Dates: start: 2017

REACTIONS (6)
  - Feeling abnormal [None]
  - Vaginal haemorrhage [Recovered/Resolved]
  - Emotional disorder [None]
  - Fatigue [Recovered/Resolved]
  - Social avoidant behaviour [Recovered/Resolved]
  - Suicidal ideation [Recovered/Resolved with Sequelae]
